FAERS Safety Report 21213081 (Version 3)
Quarter: 2022Q4

REPORT INFORMATION
  Report Type: Spontaneous
  Country: US (occurrence: US)
  Receive Date: 20220815
  Receipt Date: 20221223
  Transmission Date: 20230113
  Serious: No
  Sender: FDA-Public Use
  Company Number: US-Blueprint Medicines Corporation-329

PATIENT
  Age: 65 Year
  Sex: Female

DRUGS (1)
  1. AYVAKIT [Suspect]
     Active Substance: AVAPRITINIB
     Indication: Gastrointestinal stromal tumour
     Route: 048
     Dates: start: 20200117

REACTIONS (4)
  - Memory impairment [Unknown]
  - Diverticulum [Unknown]
  - Influenza like illness [Unknown]
  - Hepatic pain [Unknown]

NARRATIVE: CASE EVENT DATE: 20210901
